FAERS Safety Report 6704129-4 (Version None)
Quarter: 2010Q2

REPORT INFORMATION
  Report Type: 
  Country: None (occurrence: None)
  Receive Date: 20100430
  Receipt Date: 20100422
  Transmission Date: 20101027
  Serious: Yes (Other)
  Sender: FDA-Public Use
  Company Number: FR-JNJFOC-20100301937

PATIENT
  Sex: Female
  Weight: 60 kg

DRUGS (9)
  1. PREZISTA [Suspect]
     Indication: HIV INFECTION
     Route: 048
     Dates: start: 20091215, end: 20100318
  2. NORVIR [Concomitant]
     Indication: HIV INFECTION
     Dates: start: 20091215, end: 20100318
  3. KIVEXA [Concomitant]
     Indication: HIV INFECTION
  4. KALETRA [Concomitant]
     Indication: HIV INFECTION
  5. FUZEON [Concomitant]
     Indication: HIV INFECTION
  6. ADALAT [Concomitant]
     Indication: DRUG USE FOR UNKNOWN INDICATION
  7. TARDYFERON [Concomitant]
     Indication: DRUG USE FOR UNKNOWN INDICATION
  8. POLYGYNAX [Concomitant]
     Indication: DRUG USE FOR UNKNOWN INDICATION
  9. SALBUMOL [Concomitant]
     Indication: DRUG USE FOR UNKNOWN INDICATION

REACTIONS (3)
  - CYTOLYTIC HEPATITIS [None]
  - DRUG EXPOSURE DURING PREGNANCY [None]
  - PREMATURE LABOUR [None]
